FAERS Safety Report 6508196-2 (Version None)
Quarter: 2009Q4

REPORT INFORMATION
  Report Type: 
  Country: None (occurrence: None)
  Receive Date: 20091221
  Receipt Date: 20090513
  Transmission Date: 20100525
  Serious: No
  Sender: FDA-Public Use
  Company Number: US-ASTRAZENECA-2008UW28482

PATIENT
  Age: 57 Year
  Sex: Female
  Weight: 71.7 kg

DRUGS (1)
  1. CRESTOR [Suspect]
     Route: 048
     Dates: start: 20081209, end: 20090401

REACTIONS (3)
  - MYALGIA [None]
  - PAIN IN EXTREMITY [None]
  - WEIGHT DECREASED [None]
